FAERS Safety Report 7948082-4 (Version None)
Quarter: 2011Q4

REPORT INFORMATION
  Report Type: 
  Country: None (occurrence: None)
  Receive Date: 20111121
  Receipt Date: 20111110
  Transmission Date: 20120403
  Serious: Yes (Other)
  Sender: FDA-Public Use
  Company Number: 2011SP053331

PATIENT
  Sex: Male

DRUGS (2)
  1. PEG-INTRON [Suspect]
     Indication: HEPATITIS C
     Dates: start: 20010101
  2. RIBAVIRIN [Suspect]
     Indication: HEPATITIS C
     Dates: start: 20010101

REACTIONS (2)
  - DRUG INEFFECTIVE [None]
  - HEPATIC CIRRHOSIS [None]
